FAERS Safety Report 12660862 (Version 2)
Quarter: 2016Q3

REPORT INFORMATION
  Report Type: Spontaneous
  Country: US (occurrence: US)
  Receive Date: 20160817
  Receipt Date: 20160901
  Transmission Date: 20161109
  Serious: No
  Sender: FDA-Public Use
  Company Number: US-RELYPSA-RLY2016001121

PATIENT
  Age: 70 Year
  Sex: Male

DRUGS (6)
  1. COLCHICINE. [Concomitant]
     Active Substance: COLCHICINE
     Indication: GOUT
     Dosage: 0.6 MG, QD
  2. LISINOPRIL. [Concomitant]
     Active Substance: LISINOPRIL
     Dosage: 10 MG, QD
  3. ULORIC [Concomitant]
     Active Substance: FEBUXOSTAT
     Indication: GOUT
     Dosage: 80 MG, UNK
  4. VELTASSA [Suspect]
     Active Substance: PATIROMER
     Dosage: 8.4 G, QD
     Route: 048
     Dates: start: 201606
  5. METOPROLOL. [Concomitant]
     Active Substance: METOPROLOL
     Dosage: 25 MG, UNK
  6. VELTASSA [Suspect]
     Active Substance: PATIROMER
     Indication: HYPERKALAEMIA
     Dosage: 8.4 G, QD
     Route: 048
     Dates: start: 20160530

REACTIONS (1)
  - Miliaria [Recovering/Resolving]

NARRATIVE: CASE EVENT DATE: 20160602
